FAERS Safety Report 5762582-7 (Version None)
Quarter: 2008Q2

REPORT INFORMATION
  Report Type: 
  Country: None (occurrence: None)
  Receive Date: 20080609
  Receipt Date: 20080528
  Transmission Date: 20081010
  Serious: Yes (Hospitalization)
  Sender: FDA-Public Use
  Company Number: CA-JNJFOC-20080506022

PATIENT
  Sex: Male

DRUGS (3)
  1. REMICADE [Suspect]
     Dosage: INFUSION NUMBER 25
     Route: 042
  2. REMICADE [Suspect]
     Dosage: INFUSION NUMBER 24.
     Route: 042
  3. REMICADE [Suspect]
     Indication: DRUG USE FOR UNKNOWN INDICATION
     Dosage: INFUSIONS ONE THROUGH 23
     Route: 042

REACTIONS (3)
  - ADHESION [None]
  - HERNIA [None]
  - OBSTRUCTION [None]
